FAERS Safety Report 7532509-6 (Version None)
Quarter: 2011Q2

REPORT INFORMATION
  Report Type: 
  Country: None (occurrence: None)
  Receive Date: 20110608
  Receipt Date: 20110526
  Transmission Date: 20111010
  Serious: Yes (Hospitalization, Other)
  Sender: FDA-Public Use
  Company Number: PHHY2010CA43595

PATIENT
  Sex: Female

DRUGS (4)
  1. SANDOSTATIN LAR [Suspect]
     Dosage: 20 MG, EVERY 4 WEEKS
     Route: 030
  2. SANDOSTATIN LAR [Suspect]
     Indication: NEUROENDOCRINE TUMOUR
     Dosage: 20 MG ONCE A MONTH
     Route: 030
     Dates: start: 20100420
  3. SANDOSTATIN LAR [Suspect]
     Dosage: 20 MG, UNK
     Dates: start: 20101013
  4. SANDOSTATIN LAR [Suspect]
     Dosage: 30 MG, EVERY 4 WEEKS
     Route: 030

REACTIONS (11)
  - H1N1 INFLUENZA [None]
  - MALAISE [None]
  - DIARRHOEA [None]
  - NAUSEA [None]
  - HEADACHE [None]
  - BLOOD PRESSURE INCREASED [None]
  - DEHYDRATION [None]
  - CROHN'S DISEASE [None]
  - FLUSHING [None]
  - HYPOKALAEMIA [None]
  - PAIN [None]
